FAERS Safety Report 17160734 (Version 1)
Quarter: 2019Q4

REPORT INFORMATION
  Report Type: Spontaneous
  Country: US (occurrence: US)
  Receive Date: 20191216
  Receipt Date: 20191216
  Transmission Date: 20200122
  Serious: No
  Sender: FDA-Public Use
  Company Number: US-AKRON, INC.-2077858

PATIENT
  Sex: Female

DRUGS (1)
  1. DORZOLAMIDE TIMOLOL MALEATE OPHTHALMIC SOLUTION [Suspect]
     Active Substance: DORZOLAMIDE HYDROCHLORIDE\TIMOLOL MALEATE
     Route: 047

REACTIONS (2)
  - Alopecia [Recovering/Resolving]
  - Pain of skin [Recovering/Resolving]
